FAERS Safety Report 10473325 (Version 1)
Quarter: 2014Q3

REPORT INFORMATION
  Report Type: Spontaneous
  Country: CA (occurrence: None)
  Receive Date: 20140922
  Receipt Date: 20140922
  Transmission Date: 20150326
  Serious: Yes (Hospitalization)
  Sender: FDA-Public Use
  Company Number: 2014SCAL000098

PATIENT
  Age: 48 Year
  Sex: Female

DRUGS (6)
  1. LORAZEPAM(LORAZEPAM) [Concomitant]
     Active Substance: LORAZEPAM
  2. ATORVASTATIN(ATORVASTATIN) [Concomitant]
  3. CLONIDINE HYDROCHLORIDE. [Suspect]
     Active Substance: CLONIDINE HYDROCHLORIDE
     Indication: PRODUCT USED FOR UNKNOWN INDICATION
  4. PROPRANOLOL [Suspect]
     Active Substance: PROPRANOLOL\PROPRANOLOL HYDROCHLORIDE
     Indication: PRODUCT USED FOR UNKNOWN INDICATION
  5. QUETIAPINE(QUETIAPINE) [Concomitant]
  6. ESCITALOPRAM(ESCITALOPRAM) [Concomitant]

REACTIONS (7)
  - Heart rate abnormal [None]
  - Blood pressure systolic abnormal [None]
  - PCO2 abnormal [None]
  - Exposure via ingestion [None]
  - Intentional overdose [None]
  - Blood glucose abnormal [None]
  - PO2 abnormal [None]
